FAERS Safety Report 6129508-8 (Version None)
Quarter: 2009Q1

REPORT INFORMATION
  Report Type: 
  Country: None (occurrence: None)
  Receive Date: 20090324
  Receipt Date: 20090315
  Transmission Date: 20090719
  Serious: Yes (Hospitalization)
  Sender: FDA-Public Use
  Company Number: FR-ROCHE-622023

PATIENT
  Age: 52 Year
  Sex: Female

DRUGS (4)
  1. VALIUM [Suspect]
     Indication: DEPRESSION
     Route: 048
  2. AMLOR [Concomitant]
     Indication: ANGINA PECTORIS
     Dates: start: 19980101
  3. PRAVASTATIN [Concomitant]
  4. CYMBALTA [Concomitant]

REACTIONS (3)
  - ANGINA PECTORIS [None]
  - OVERDOSE [None]
  - THROMBOCYTHAEMIA [None]
